FAERS Safety Report 8481950-6 (Version None)
Quarter: 2012Q2

REPORT INFORMATION
  Report Type: 
  Country: None (occurrence: None)
  Receive Date: 20120626
  Receipt Date: 20120626
  Transmission Date: 20120825
  Serious: Yes (Other)
  Sender: FDA-Public Use
  Company Number: None

PATIENT
  Age: 40 Year
  Sex: Female
  Weight: 67.1324 kg

DRUGS (3)
  1. CHOLECALCIFEROL [Concomitant]
  2. SERTRALINE HYDROCHLORIDE [Concomitant]
  3. OCELLA 3-0.03 MG TEVA [Suspect]
     Indication: CONTRACEPTION
     Dosage: 1 TAB QD PO
     Route: 048
     Dates: start: 20070801, end: 20120513

REACTIONS (1)
  - INFUSION SITE THROMBOSIS [None]
